FAERS Safety Report 6681993-9 (Version None)
Quarter: 2010Q2

REPORT INFORMATION
  Report Type: 
  Country: None (occurrence: None)
  Receive Date: 20100414
  Receipt Date: 20100414
  Transmission Date: 20101027
  Serious: No
  Sender: FDA-Public Use
  Company Number: None

PATIENT
  Age: 71 Year
  Sex: Male
  Weight: 81.6475 kg

DRUGS (1)
  1. OXYCODONE GENERIC PERCOCET [Suspect]
     Indication: SINUS HEADACHE
     Dosage: 5 MG - 325 MG 2 TABS/ 4 HRS ORAL
     Route: 048

REACTIONS (2)
  - ABNORMAL BEHAVIOUR [None]
  - AGGRESSION [None]
